FAERS Safety Report 10151376 (Version 1)
Quarter: 2014Q2

REPORT INFORMATION
  Report Type: Spontaneous
  Country: US (occurrence: US)
  Receive Date: 20140502
  Receipt Date: 20140502
  Transmission Date: 20141212
  Serious: No
  Sender: FDA-Public Use
  Company Number: US-ASTRAZENECA-2013SE62374

PATIENT
  Age: 75 Year
  Sex: Female

DRUGS (6)
  1. PRILOSEC OTC [Suspect]
     Route: 048
     Dates: start: 20130801, end: 20130801
  2. CHOLESTEROL- AND TRIGLYCERIDE REDUCERS [Concomitant]
     Dosage: UNKNOWN
  3. DIURETICS [Concomitant]
     Dosage: UNKNOWN
  4. ANTIANXIETY [Concomitant]
     Dosage: UNKNOWN
  5. SUPPLEMENTS [Concomitant]
     Dosage: UNKNOWN
  6. VITAMINS NOS [Concomitant]
     Dosage: UNKNOWN

REACTIONS (1)
  - Dyspepsia [Recovered/Resolved]
